FAERS Safety Report 10447615 (Version 2)
Quarter: 2015Q2

REPORT INFORMATION
  Report Type: Spontaneous
  Country: US (occurrence: US)
  Receive Date: 20140911
  Receipt Date: 20150601
  Transmission Date: 20150821
  Serious: Yes (Death, Other)
  Sender: FDA-Public Use
  Company Number: US-MERCK-1409USA004768

PATIENT
  Sex: Female
  Weight: 92.52 kg

DRUGS (1)
  1. JANUVIA [Suspect]
     Active Substance: SITAGLIPTIN PHOSPHATE
     Indication: TYPE 2 DIABETES MELLITUS
     Dosage: 100 MG, QD
     Route: 048
     Dates: start: 20110906, end: 20130520

REACTIONS (11)
  - Essential hypertension [Unknown]
  - Road traffic accident [Unknown]
  - Pulmonary mass [Unknown]
  - Constipation [Unknown]
  - Pancreatic carcinoma metastatic [Unknown]
  - Musculoskeletal pain [Unknown]
  - Death [Fatal]
  - Metastases to liver [Unknown]
  - Arthritis [Unknown]
  - Hyperlipidaemia [Unknown]
  - Insomnia [Unknown]

NARRATIVE: CASE EVENT DATE: 20130422
